FAERS Safety Report 7090318-9 (Version None)
Quarter: 2010Q4

REPORT INFORMATION
  Report Type: 
  Country: None (occurrence: None)
  Receive Date: 20101104
  Receipt Date: 20101104
  Transmission Date: 20110411
  Serious: No
  Sender: FDA-Public Use
  Company Number: None

PATIENT
  Age: 32 Year
  Sex: Female

DRUGS (1)
  1. GIANVI TEVA [Suspect]
     Dosage: 1 TABLET BY MOUTH DAILY SKIPPING THE PLACEBO PILLS AND CONTINUALLY
     Dates: start: 20100201

REACTIONS (3)
  - DIARRHOEA [None]
  - METRORRHAGIA [None]
  - PRODUCT SUBSTITUTION ISSUE [None]
